FAERS Safety Report 21394503 (Version 1)
Quarter: 2022Q3

REPORT INFORMATION
  Report Type: Spontaneous
  Country: US (occurrence: US)
  Receive Date: 20220930
  Receipt Date: 20220930
  Transmission Date: 20221027
  Serious: Yes (Life-Threatening, Hospitalization, Other)
  Sender: FDA-Public Use
  Company Number: US-INGENUS PHARMACEUTICALS NJ, LLC-2022ING000007

PATIENT

DRUGS (14)
  1. PHOSPHA 250 NEUTRAL [Suspect]
     Active Substance: POTASSIUM PHOSPHATE, MONOBASIC\SODIUM PHOSPHATE, DIBASIC, ANHYDROUS\SODIUM PHOSPHATE, MONOBASIC, MON
     Indication: Product used for unknown indication
     Dosage: 1 TABLET, BID
     Route: 048
     Dates: start: 20220808, end: 20220814
  2. CYCLOPHOSPHAMIDE [Suspect]
     Active Substance: CYCLOPHOSPHAMIDE
     Indication: Ewing^s sarcoma
     Dosage: UNK
     Route: 065
     Dates: start: 20220725
  3. SECLIDEMSTAT [Suspect]
     Active Substance: SECLIDEMSTAT
     Indication: Ewing^s sarcoma
     Dosage: 900 MILLIGRAM, BID
     Route: 048
     Dates: start: 20220725
  4. TOPOTECAN [Suspect]
     Active Substance: TOPOTECAN HYDROCHLORIDE
     Indication: Ewing^s sarcoma
     Dosage: UNK
     Route: 065
     Dates: start: 20220725
  5. SENNA [Suspect]
     Active Substance: SENNA LEAF\SENNOSIDES\SENNOSIDES A AND B
     Indication: Constipation
     Dosage: 2 TABLETS, PRN
     Route: 048
     Dates: start: 20190712
  6. DOCQLACE [Suspect]
     Active Substance: DOCUSATE SODIUM
     Indication: Constipation
     Dosage: 100 MILLIGRAM, TID
     Route: 048
     Dates: start: 20190808
  7. ATORVASTATIN [Suspect]
     Active Substance: ATORVASTATIN
     Indication: Hyperlipidaemia
     Dosage: 40 MILLIGRAM, QD
     Route: 048
     Dates: start: 20200101
  8. OMEPRAZOLE [Suspect]
     Active Substance: OMEPRAZOLE
     Indication: Dyspepsia
     Dosage: 40 MILLIGRAM, QD, AS NEEDED
     Route: 048
     Dates: start: 20190101
  9. ONDANSETRON [Suspect]
     Active Substance: ONDANSETRON
     Indication: Nausea
     Dosage: 8 MILLIGRAM, PRN
     Route: 048
     Dates: start: 20190101
  10. ENOXAPARIN [Suspect]
     Active Substance: ENOXAPARIN
     Indication: Embolism
     Dosage: 40 MG/0.4 ML, QD
     Route: 058
     Dates: start: 20190101
  11. POTASSIUM [Suspect]
     Active Substance: POTASSIUM
     Indication: Product used for unknown indication
     Dosage: 250 MILLIGRAM, BID
     Route: 048
     Dates: start: 20220808
  12. AUGMENTIN [Suspect]
     Active Substance: AMOXICILLIN\CLAVULANATE POTASSIUM
     Indication: Tooth infection
     Dosage: 500-125 MG
     Route: 048
     Dates: start: 20220812, end: 20220817
  13. AUGMENTIN [Suspect]
     Active Substance: AMOXICILLIN\CLAVULANATE POTASSIUM
     Indication: Sinusitis
  14. MIRALAX [Suspect]
     Active Substance: POLYETHYLENE GLYCOL 3350
     Indication: Constipation
     Dosage: 17 GRAM, QD, AS NEEDED
     Route: 048
     Dates: start: 20200407

REACTIONS (5)
  - Hydronephrosis [Unknown]
  - Febrile neutropenia [Recovered/Resolved]
  - Urosepsis [Recovered/Resolved]
  - Anaemia [Recovering/Resolving]
  - Lethargy [Unknown]

NARRATIVE: CASE EVENT DATE: 20220823
